FAERS Safety Report 12868956 (Version 1)
Quarter: 2016Q4

REPORT INFORMATION
  Report Type: Spontaneous
  Country: US (occurrence: US)
  Receive Date: 20161019
  Receipt Date: 20161019
  Transmission Date: 20170207
  Serious: Yes (Hospitalization)
  Sender: FDA-Public Use
  Company Number: None

PATIENT
  Age: 93 Year
  Sex: Male
  Weight: 73.1 kg

DRUGS (1)
  1. RIVOROXABAN [Suspect]
     Active Substance: RIVAROXABAN
     Indication: DEEP VEIN THROMBOSIS
     Route: 048
     Dates: start: 20160715, end: 20160720

REACTIONS (4)
  - Asthenia [None]
  - Anaemia [None]
  - Ureteric stenosis [None]
  - Haematuria [None]

NARRATIVE: CASE EVENT DATE: 20160718
